FAERS Safety Report 7509929-9 (Version None)
Quarter: 2011Q2

REPORT INFORMATION
  Report Type: 
  Country: None (occurrence: None)
  Receive Date: 20110527
  Receipt Date: 20110523
  Transmission Date: 20111010
  Serious: Yes (Hospitalization)
  Sender: FDA-Public Use
  Company Number: US-ABBOTT-11P-163-0728269-00

PATIENT
  Sex: Female
  Weight: 50.848 kg

DRUGS (3)
  1. HUMIRA [Suspect]
     Indication: CROHN'S DISEASE
     Dosage: ON HOLD
     Dates: start: 20080101
  2. PENTASA [Concomitant]
     Indication: CROHN'S DISEASE
     Dosage: ON HOLD
     Dates: start: 20010101
  3. PROTONIX [Concomitant]
     Indication: PRODUCT USED FOR UNKNOWN INDICATION

REACTIONS (6)
  - OESOPHAGEAL POLYP [None]
  - DIARRHOEA [None]
  - VOMITING [None]
  - ABDOMINAL PAIN [None]
  - CROHN'S DISEASE [None]
  - MALAISE [None]
